FAERS Safety Report 25691695 (Version 3)
Quarter: 2025Q4

REPORT INFORMATION
  Report Type: Spontaneous
  Country: GB (occurrence: GB)
  Receive Date: 20250818
  Receipt Date: 20251226
  Transmission Date: 20260118
  Serious: Yes (Hospitalization, Other)
  Sender: NOVARTIS
  Company Number: GB-002147023-NVSC2025GB126347

PATIENT
  Age: 82 Year
  Sex: Female
  Weight: 59.875 kg

DRUGS (13)
  1. VOTRIENT [Suspect]
     Active Substance: PAZOPANIB HYDROCHLORIDE
     Indication: Renal cancer
     Dosage: 400 MG, QD
     Route: 048
     Dates: start: 201908
  2. MORPHINE SULFATE [Concomitant]
     Active Substance: MORPHINE SULFATE
     Indication: Analgesic therapy
     Dosage: DOSE 2.5 MG TO 5 MG (Q2H)
     Route: 048
  3. SENNA [Concomitant]
     Active Substance: SENNOSIDES
     Indication: Constipation
     Dosage: 15 MG (AT NIGHT AS REQUIRED)
     Route: 048
  4. ACETAMINOPHEN [Concomitant]
     Active Substance: ACETAMINOPHEN
     Indication: Analgesic therapy
     Dosage: 2 DOSAGE FORM (4 TIMES A DAY AS REQUIRED)
     Route: 048
  5. POLYETHYLENE GLYCOL 3350\POTASSIUM CHLORIDE\SODIUM BICARBONATE\SODIUM [Concomitant]
     Active Substance: POLYETHYLENE GLYCOL 3350\POTASSIUM CHLORIDE\SODIUM BICARBONATE\SODIUM CHLORIDE
     Indication: Constipation
     Dosage: 1 DOSAGE FORM, QD (13.125G/1SACHET ORAL POWDER SUGAR-FREE - DOSE 1 SACHET -ORAL - ONCE A DAY IN THE
     Route: 048
  6. CALCIUM\CHOLECALCIFEROL [Concomitant]
     Active Substance: CALCIUM\CHOLECALCIFEROL
     Indication: Product used for unknown indication
     Dosage: 1 DOSAGE FORM QD (COLECALCIFEROL 1,000UNIT / CALCIUM CARBONATE 2.5G CHEWABLE TABLETS, ONE TO BE TAKE
     Route: 065
     Dates: start: 20230406, end: 20251104
  7. RISEDRONATE SODIUM [Concomitant]
     Active Substance: RISEDRONATE SODIUM
     Indication: Product used for unknown indication
     Dosage: 1 DOSAGE FORM, QW (4 TABLETS, ONE TO BE TAKEN ON THE SAME DAY EACH WEEK - REVIEW OVERDUE 03/2024)
     Route: 065
     Dates: start: 20250908, end: 20251201
  8. AMLODIPINE [Concomitant]
     Active Substance: AMLODIPINE BESYLATE
     Indication: Product used for unknown indication
     Dosage: 5 MG, QD (7 TABLETS)
     Route: 065
     Dates: start: 20251104, end: 20251125
  9. APIXABAN [Concomitant]
     Active Substance: APIXABAN
     Indication: Atrial fibrillation
     Dosage: 2.5 MG, BID (14 TABLETS, ONE TO BE TAKEN TWICE A DAY)
     Route: 065
     Dates: start: 20251104, end: 20251125
  10. BISOPROLOL [Concomitant]
     Active Substance: BISOPROLOL
     Indication: Product used for unknown indication
     Route: 065
  11. DIGOXIN [Concomitant]
     Active Substance: DIGOXIN
     Indication: Product used for unknown indication
     Dosage: 125 UG, QD (7 TABLET,ONE TO BE TAKEN EACH DAY)
     Route: 065
     Dates: start: 20251104, end: 20251125
  12. ENALAPRIL [Concomitant]
     Active Substance: ENALAPRIL
     Indication: Essential hypertension
     Dosage: 20 MG, QD (TAKE ONE DAILY (DISPENSE TABLET 3 OF 4 MANUFACTURED BY WINTHROP)
     Route: 065
     Dates: start: 20251104, end: 20251125
  13. FUROSEMIDE [Concomitant]
     Active Substance: FUROSEMIDE
     Indication: Product used for unknown indication
     Dosage: 40 MG, QD
     Route: 065
     Dates: start: 20251104, end: 20251125

REACTIONS (8)
  - Fall [Recovered/Resolved]
  - Femur fracture [Not Recovered/Not Resolved]
  - Pelvic fracture [Not Recovered/Not Resolved]
  - Arthritis [Not Recovered/Not Resolved]
  - Dizziness [Not Recovered/Not Resolved]
  - Arthralgia [Unknown]
  - Cerebrovascular accident [Not Recovered/Not Resolved]
  - Balance disorder [Unknown]

NARRATIVE: CASE EVENT DATE: 20190914
